FAERS Safety Report 5404688-8 (Version None)
Quarter: 2007Q3

REPORT INFORMATION
  Report Type: 
  Country: None (occurrence: None)
  Receive Date: 20070731
  Receipt Date: 20070716
  Transmission Date: 20080115
  Serious: Yes (Hospitalization)
  Sender: FDA-Public Use
  Company Number: MEDI-0005866

PATIENT
  Age: 8 Month
  Sex: Male
  Weight: 5.8 kg

DRUGS (3)
  1. SYNAGIS [Suspect]
     Indication: RESPIRATORY SYNCYTIAL VIRUS INFECTION
     Dosage: 106 MG, INTRAMUSCULAR; 113 MG, INTRAMUSCULAR
     Route: 030
     Dates: start: 20070126, end: 20070126
  2. SYNAGIS [Suspect]
     Indication: RESPIRATORY SYNCYTIAL VIRUS INFECTION
     Dosage: 106 MG, INTRAMUSCULAR; 113 MG, INTRAMUSCULAR
     Route: 030
     Dates: start: 20070227
  3. SYNAGIS [Suspect]

REACTIONS (2)
  - BRONCHIOLITIS [None]
  - RHINORRHOEA [None]
